FAERS Safety Report 7357558-2 (Version None)
Quarter: 2011Q1

REPORT INFORMATION
  Report Type: 
  Country: None (occurrence: None)
  Receive Date: 20110317
  Receipt Date: 20110314
  Transmission Date: 20110831
  Serious: No
  Sender: FDA-Public Use
  Company Number: US-ELI_LILLY_AND_COMPANY-US201101006655

PATIENT
  Age: 7 Year
  Sex: Female

DRUGS (2)
  1. SODIUM CHLORIDE [Suspect]
     Dates: start: 20110111, end: 20110122
  2. HUMALOG [Suspect]

REACTIONS (2)
  - BLOOD GLUCOSE INCREASED [None]
  - WRONG DRUG ADMINISTERED [None]
